FAERS Safety Report 24749162 (Version 1)
Quarter: 2024Q4

REPORT INFORMATION
  Report Type: Report from Study
  Country: CO (occurrence: CO)
  Receive Date: 20241218
  Receipt Date: 20241218
  Transmission Date: 20250114
  Serious: Yes (Other)
  Sender: NOVARTIS
  Company Number: CO-002147023-NVSC2024CO038131

PATIENT
  Sex: Female
  Weight: 62 kg

DRUGS (2)
  1. COSENTYX [Suspect]
     Active Substance: SECUKINUMAB
     Indication: Spondyloarthropathy
     Dosage: 150 MG, QMO
     Route: 058
     Dates: start: 20231108
  2. COSENTYX [Suspect]
     Active Substance: SECUKINUMAB
     Indication: Ankylosing spondylitis
     Dosage: UNK
     Route: 065
     Dates: start: 20241210

REACTIONS (24)
  - Choking [Unknown]
  - Dyspnoea [Unknown]
  - Gait disturbance [Unknown]
  - Fatigue [Unknown]
  - Bone pain [Recovering/Resolving]
  - Burning sensation [Unknown]
  - Product use in unapproved indication [Unknown]
  - Mobility decreased [Unknown]
  - Amnesia [Unknown]
  - Breast inflammation [Unknown]
  - Overweight [Unknown]
  - Arthralgia [Unknown]
  - Weight increased [Unknown]
  - Pain [Unknown]
  - Drug ineffective [Unknown]
  - Weight decreased [Unknown]
  - Stress [Unknown]
  - Nasal obstruction [Unknown]
  - Rhinitis [Unknown]
  - Throat tightness [Unknown]
  - Dry mouth [Unknown]
  - Nasal dryness [Unknown]
  - Inflammation [Unknown]
  - Tension [Unknown]
